FAERS Safety Report 9520145 (Version 1)
Quarter: 2013Q1

REPORT INFORMATION
  Report Type: Spontaneous
  Country: US (occurrence: None)
  Receive Date: 20130305
  Receipt Date: 20130305
  Transmission Date: 20140127
  Serious: No
  Sender: FDA-Public Use
  Company Number: 163-21880-12013234

PATIENT
  Age: 66 Year
  Sex: Male

DRUGS (7)
  1. REVLIMID (LENALIDOMIDE) (25 MILLIGRAM, CAPSULES) [Suspect]
     Indication: PLASMA CELL MYELOMA
     Dosage: 25MG, QD X 21D/28D, PO
     Route: 048
     Dates: start: 20120104, end: 20120124
  2. COUMADIN (WARFARIN SODIUM) [Concomitant]
  3. LOVENOX (HEPARIN-FRACTION, SODIUM SALT) [Concomitant]
  4. DECADRON (DEXAMETHASONE) [Concomitant]
  5. AREDIA (PAMIDRONATE DISODIUM) [Concomitant]
  6. VICODIN (VICODIN) [Concomitant]
  7. ATIVAN (LORAZEPAM) [Concomitant]

REACTIONS (2)
  - Deep vein thrombosis [None]
  - Pulmonary embolism [None]
